FAERS Safety Report 8975770 (Version 1)
Quarter: 2012Q4

REPORT INFORMATION
  Report Type: 
  Country: US (occurrence: US)
  Receive Date: 20121219
  Receipt Date: 20121219
  Transmission Date: 20130627
  Serious: No
  Sender: FDA-Public Use
  Company Number: US-PFIZER INC-2012317398

PATIENT
  Sex: Female

DRUGS (1)
  1. PREMARIN [Suspect]
     Dosage: UNK
     Route: 048

REACTIONS (5)
  - Mood altered [Unknown]
  - Memory impairment [Unknown]
  - Pain [Unknown]
  - Fatigue [Unknown]
  - Feeling abnormal [Unknown]
